FAERS Safety Report 19811941 (Version 1)
Quarter: 2021Q3

REPORT INFORMATION
  Report Type: Spontaneous
  Country: JP (occurrence: JP)
  Receive Date: 20210910
  Receipt Date: 20210910
  Transmission Date: 20211014
  Serious: Yes (Other)
  Sender: FDA-Public Use
  Company Number: JP-TEVA-2021-JP-1952921

PATIENT
  Age: 74 Year
  Sex: Female

DRUGS (9)
  1. AMARYL [Concomitant]
     Active Substance: GLIMEPIRIDE
  2. DOMPERIDONE [Concomitant]
     Active Substance: DOMPERIDONE
  3. BAYASPIRIN [Concomitant]
     Active Substance: ASPIRIN
  4. AZILECT [Suspect]
     Active Substance: RASAGILINE MESYLATE
     Indication: PARKINSON^S DISEASE
     Dosage: 1 MILLIGRAM DAILY;
     Route: 048
     Dates: start: 20180720
  5. TAKECAB [Concomitant]
     Active Substance: VONOPRAZAN FUMARATE
  6. ATORVASTATIN CALCIUM. [Concomitant]
     Active Substance: ATORVASTATIN CALCIUM
  7. NEODOPASTON [Concomitant]
     Active Substance: CARBIDOPA\LEVODOPA
     Route: 065
  8. EFIENT [Concomitant]
     Active Substance: PRASUGREL HYDROCHLORIDE
  9. SAMSCA [Concomitant]
     Active Substance: TOLVAPTAN

REACTIONS (1)
  - Interventricular septum rupture [Recovered/Resolved]

NARRATIVE: CASE EVENT DATE: 20181204
